FAERS Safety Report 8910901 (Version 1)
Quarter: 2012Q4

REPORT INFORMATION
  Report Type: 
  Country: DE (occurrence: DE)
  Receive Date: 20121116
  Receipt Date: 20121116
  Transmission Date: 20130627
  Serious: Yes (Hospitalization)
  Sender: FDA-Public Use
  Company Number: DE-ELI_LILLY_AND_COMPANY-DE201211002656

PATIENT
  Age: 74 Year
  Sex: Female

DRUGS (5)
  1. FORSTEO [Suspect]
     Indication: OSTEOPOROSIS
     Dosage: UNK, qd
     Route: 058
     Dates: start: 20120509
  2. IBUPROFEN [Concomitant]
     Dosage: UNK, unknown
     Route: 065
  3. VITAMIN D NOS [Concomitant]
     Route: 065
  4. NITREN [Concomitant]
     Dosage: 0.5 DF, tid
     Route: 065
  5. ANTIDEPRESSANTS [Concomitant]
     Dosage: UNK, unknown
     Route: 065

REACTIONS (3)
  - Pain in extremity [Not Recovered/Not Resolved]
  - Intervertebral disc protrusion [Not Recovered/Not Resolved]
  - Nerve compression [Unknown]
